FAERS Safety Report 21407976 (Version 2)
Quarter: 2022Q4

REPORT INFORMATION
  Report Type: Report from Study
  Country: US (occurrence: US)
  Receive Date: 20221004
  Receipt Date: 20221008
  Transmission Date: 20230112
  Serious: No
  Sender: FDA-Public Use
  Company Number: US-ABBVIE-4135514

PATIENT
  Age: 61 Year
  Sex: Male

DRUGS (2)
  1. SKYRIZI [Suspect]
     Active Substance: RISANKIZUMAB-RZAA
     Indication: Psoriasis
     Route: 058
     Dates: start: 20220222, end: 2022
  2. Covid-19 vaccine [Concomitant]
     Indication: COVID-19 immunisation
     Route: 030

REACTIONS (2)
  - Skin discolouration [Recovering/Resolving]
  - Skin plaque [Recovering/Resolving]

NARRATIVE: CASE EVENT DATE: 20220902
